FAERS Safety Report 4911735-6 (Version None)
Quarter: 2006Q1

REPORT INFORMATION
  Report Type: 
  Country: None (occurrence: None)
  Receive Date: 20060213
  Receipt Date: 20060131
  Transmission Date: 20060701
  Serious: Yes (Life-Threatening, Hospitalization)
  Sender: FDA-Public Use
  Company Number: CIP06000016

PATIENT
  Age: 54 Year
  Sex: Female
  Weight: 56.7 kg

DRUGS (5)
  1. ACTONEL [Suspect]
     Indication: OSTEOPOROSIS
     Dosage: 35 MG ONCE WEEKLY, ORAL
     Route: 048
     Dates: start: 20040301, end: 20051201
  2. IBUPROFEN [Concomitant]
  3. MULTI-VIT (VITAMINS NOS) [Concomitant]
  4. CALCIUM (CALCIUM) [Concomitant]
  5. MACROBID [Concomitant]

REACTIONS (3)
  - HAEMATOCRIT DECREASED [None]
  - HAEMOGLOBIN DECREASED [None]
  - SMALL INTESTINAL HAEMORRHAGE [None]
